FAERS Safety Report 17792495 (Version 2)
Quarter: 2020Q2

REPORT INFORMATION
  Report Type: Spontaneous
  Country: US (occurrence: US)
  Receive Date: 20200515
  Receipt Date: 20200609
  Transmission Date: 20200714
  Serious: Yes (Other)
  Sender: FDA-Public Use
  Company Number: US-SHIRE-US202015865

PATIENT
  Sex: Female
  Weight: 56.69 kg

DRUGS (21)
  1. CEFDINIR. [Concomitant]
     Active Substance: CEFDINIR
     Indication: PRODUCT USED FOR UNKNOWN INDICATION
  2. PANTOPRAZOLE [Concomitant]
     Active Substance: PANTOPRAZOLE
     Indication: PRODUCT USED FOR UNKNOWN INDICATION
  3. EPINEPHRINE. [Concomitant]
     Active Substance: EPINEPHRINE
     Indication: PRODUCT USED FOR UNKNOWN INDICATION
  4. KLONOPIN [Concomitant]
     Active Substance: CLONAZEPAM
     Indication: PRODUCT USED FOR UNKNOWN INDICATION
  5. XYZAL [Concomitant]
     Active Substance: LEVOCETIRIZINE DIHYDROCHLORIDE
     Indication: PRODUCT USED FOR UNKNOWN INDICATION
  6. LMX [AMOXICILLIN TRIHYDRATE;BACILLUS COAGULANS] [Concomitant]
     Indication: PRODUCT USED FOR UNKNOWN INDICATION
  7. FLUTICASONE. [Concomitant]
     Active Substance: FLUTICASONE
     Indication: PRODUCT USED FOR UNKNOWN INDICATION
  8. MINIVELLE [Concomitant]
     Active Substance: ESTRADIOL
     Indication: PRODUCT USED FOR UNKNOWN INDICATION
  9. VIVELLE-DOT [Concomitant]
     Active Substance: ESTRADIOL
     Indication: PRODUCT USED FOR UNKNOWN INDICATION
  10. CETIRIZINE [Concomitant]
     Active Substance: CETIRIZINE HYDROCHLORIDE
     Indication: PRODUCT USED FOR UNKNOWN INDICATION
  11. DIPHENHYDRAMINE. [Concomitant]
     Active Substance: DIPHENHYDRAMINE
     Indication: PRODUCT USED FOR UNKNOWN INDICATION
  12. NALTREXONE [Concomitant]
     Active Substance: NALTREXONE
     Indication: PRODUCT USED FOR UNKNOWN INDICATION
  13. NORMAL SALINE [Concomitant]
     Active Substance: SODIUM CHLORIDE
     Indication: PRODUCT USED FOR UNKNOWN INDICATION
  14. XELJANZ [Concomitant]
     Active Substance: TOFACITINIB CITRATE
     Indication: SYSTEMIC LUPUS ERYTHEMATOSUS
     Route: 065
  15. PLAQUENIL [HYDROXYCHLOROQUINE PHOSPHATE] [Concomitant]
     Active Substance: HYDROXYCHLOROQUINE DIPHOSPHATE
     Indication: PRODUCT USED FOR UNKNOWN INDICATION
  16. ARMOUR THYROID [Concomitant]
     Active Substance: THYROID, PORCINE
     Indication: PRODUCT USED FOR UNKNOWN INDICATION
  17. AMOXICILLIN. [Concomitant]
     Active Substance: AMOXICILLIN
     Indication: PRODUCT USED FOR UNKNOWN INDICATION
  18. CLONIDINE. [Concomitant]
     Active Substance: CLONIDINE
     Indication: PRODUCT USED FOR UNKNOWN INDICATION
  19. HYQVIA [Suspect]
     Active Substance: HUMAN IMMUNOGLOBULIN G\HYALURONIDASE RECOMBINANT HUMAN
     Indication: IMMUNODEFICIENCY COMMON VARIABLE
     Dosage: 40 GRAM, EVERY 3 WK
     Route: 058
     Dates: start: 20161229
  20. ACETAMINOPHEN. [Concomitant]
     Active Substance: ACETAMINOPHEN
     Indication: PRODUCT USED FOR UNKNOWN INDICATION
  21. CORTISONE [Concomitant]
     Active Substance: CORTISONE
     Indication: PRODUCT USED FOR UNKNOWN INDICATION

REACTIONS (4)
  - Systemic lupus erythematosus [Unknown]
  - Infection [Unknown]
  - Meniere^s disease [Unknown]
  - Sinusitis [Unknown]
